FAERS Safety Report 16481623 (Version 1)
Quarter: 2019Q2

REPORT INFORMATION
  Report Type: Report from Study
  Country: GB (occurrence: GB)
  Receive Date: 20190627
  Receipt Date: 20190627
  Transmission Date: 20190711
  Serious: Yes (Hospitalization)
  Sender: FDA-Public Use
  Company Number: GB-ROCHE-2339262

PATIENT
  Sex: Female

DRUGS (4)
  1. ROACTEMRA [Suspect]
     Active Substance: TOCILIZUMAB
     Indication: TEMPORAL ARTERITIS
     Route: 058
     Dates: start: 20190318
  2. STEROIDS [Concomitant]
     Active Substance: UNSPECIFIED INGREDIENT
  3. EDOXABAN [Concomitant]
     Active Substance: EDOXABAN TOSYLATE
  4. DIGOXIN. [Concomitant]
     Active Substance: DIGOXIN

REACTIONS (11)
  - Facial pain [Unknown]
  - Skin cancer [Unknown]
  - Swelling face [Unknown]
  - Muscle tightness [Unknown]
  - Visual impairment [Unknown]
  - Skin discolouration [Unknown]
  - Skin tightness [Unknown]
  - Swelling [Unknown]
  - Haemorrhage [Unknown]
  - Neck pain [Unknown]
  - Sepsis [Unknown]
